FAERS Safety Report 8815917 (Version 2)
Quarter: 2015Q2

REPORT INFORMATION
  Report Type: Report from Study
  Country: US (occurrence: US)
  Receive Date: 20120928
  Receipt Date: 20150407
  Transmission Date: 20150821
  Serious: Yes (Death)
  Sender: FDA-Public Use
  Company Number: US-ROCHE-1129667

PATIENT
  Sex: Female

DRUGS (21)
  1. GEMZAR [Concomitant]
     Active Substance: GEMCITABINE HYDROCHLORIDE
     Dosage: IN 100 CC NORMAL SALINE, RECEIVED ON 16/AUG/2006, 23/AUG/2006
     Route: 042
  2. SOLU-MEDROL [Concomitant]
     Active Substance: METHYLPREDNISOLONE SODIUM SUCCINATE
     Dosage: IN 50 CC NS, RECEIVED ON 14/JUN/2006, 21/JUN/2006, 27/JUN/2006,
     Route: 042
  3. AREDIA [Concomitant]
     Active Substance: PAMIDRONATE DISODIUM
     Dosage: RECEIVED ON 19/JAN/2005
     Route: 042
  4. HERCEPTIN [Suspect]
     Active Substance: TRASTUZUMAB
     Indication: BREAST CANCER FEMALE
     Dosage: IN 250 CC NORMAL SALINE, RECEIVED ON 22/FEB/2005
     Route: 042
  5. DECADRON [Concomitant]
     Active Substance: DEXAMETHASONE
     Dosage: IN 50 CC NORMAL SALINE, RECEIVED ON  22/MAR/2005, 29/MAR/2005 05/APR/2005,  20/SEP/2005, 27/SEP/2005
     Route: 042
  6. BENADRYL [Concomitant]
     Active Substance: DIPHENHYDRAMINE HYDROCHLORIDE
     Dosage: IN 50 CC NORMAL SALINE, RECEIVED ON 22/FEB/2005, 08/MAR/2005, 15/MAR/2005, 22/MAR/2005, 29/MAR/2005,
     Route: 042
  7. CARBOPLATIN. [Concomitant]
     Active Substance: CARBOPLATIN
     Dosage: IN 250 CC NORMAL SALINE, RECEIVED ON 22/FEB/2005, 08/MAR/2005, 22/MAR/2005, 29/MAR/2005, 05/APR/2005
     Route: 042
  8. ZOMETA [Concomitant]
     Active Substance: ZOLEDRONIC ACID
     Dosage: 100 CC NORMAL SALINE, RECEIVED ON 15/FEB/2004, 15/MAR/2005, 12/APR/2005,06/SEP/2005, 04/OCT/2005, 20
     Route: 042
  9. ANZEMET [Concomitant]
     Active Substance: DOLASETRON MESYLATE
     Dosage: IN 100 CC NORMAL SALINE, RECEIVED ON 22/FEB/2005, 08/MAR/2005, 22/MAR/2005, 29/MAR/2005?IN 50 CC NOR
     Route: 042
  10. HERCEPTIN [Suspect]
     Active Substance: TRASTUZUMAB
     Dosage: RECEIVED ON 27/JUN/2006
     Route: 042
  11. HERCEPTIN [Suspect]
     Active Substance: TRASTUZUMAB
     Dosage: RECEIVED ON 01/MAR/2005, 08/MAR/2005, 15/MAR/2005, 22/MAR/2005, 29/MAR/2005, 05/APR/2005, 12/APR/200
     Route: 042
  12. HERCEPTIN [Suspect]
     Active Substance: TRASTUZUMAB
     Dosage: RECEIVED ON 12/OCT/2005
     Route: 042
  13. TYLENOL [Concomitant]
     Active Substance: ACETAMINOPHEN
     Dosage: RECEIVED ON 22/FEB/2005, 08/MAR/2005, 15/MAR/2005, 22/MAR/2005, 29/MAR/2005, 05/APR/2005, 12/APR/200
     Route: 048
  14. ALOXI [Concomitant]
     Active Substance: PALONOSETRON HYDROCHLORIDE
     Dosage: IN 50 CC NORMAL SALINE, RECEIVED ON 20/JUL/2006, 26/JUL/2006, 10/AUG/2006,16/AUG/2006, 23/AUG/2006.
     Route: 042
  15. NAVELBINE [Concomitant]
     Active Substance: VINORELBINE TARTRATE
     Dosage: RECEIVED ON 14/JUN/2006, 21/JUN/2006, 27/JUN/2006, 13/JUL/2006, 20/JUL/2006, 26/JUL/2006, 10/AUG/200
     Route: 042
  16. HERCEPTIN [Suspect]
     Active Substance: TRASTUZUMAB
     Dosage: IN 250 CC NORMAL SALINE, RECEIVED ON 14/JUN/2006, 21/JUN/2006, 13/JUL/2006, 20/JUL/2006, 26/JUL/2006
     Route: 042
  17. GEMZAR [Concomitant]
     Active Substance: GEMCITABINE HYDROCHLORIDE
     Dosage: IN 100 CC NORMAL SALINE, RECEIVED ON 14/JUN/2006, 21/JUN/2006, 27/JUN/2006, 13/JUL/2006, 20/JUL/2006
     Route: 042
  18. SOLU-MEDROL [Concomitant]
     Active Substance: METHYLPREDNISOLONE SODIUM SUCCINATE
     Dosage: IN 50 CC NS, RECEIVED ON 13/JUL/2006, 20/JUL/2006, 26/JUL/2006, 02/AUG/2006, 10/AUG/2006, 16/AUG/200
     Route: 042
  19. DECADRON [Concomitant]
     Active Substance: DEXAMETHASONE
     Dosage: IN 50 CC NORMAL SALINE, RECEIVED ON 22/FEB/2005, 08/MAR/2005, 14/JUN/2006, 21/JUN/2006, 27/JUN/2006,
     Route: 042
  20. TAXOTERE [Concomitant]
     Active Substance: DOCETAXEL
     Dosage: IN 250 CC NORMAL SALINE, RECEIVED ON 22/FEB/2005, 08/MAR/2005, 22/MAR/2005, 29/MAR/200505/APR/2005,
     Route: 042
  21. LASIX [Concomitant]
     Active Substance: FUROSEMIDE
     Dosage: IN 50 CC NORMAL SALINE, RECEIVED ON 16/AUG/2006
     Route: 042

REACTIONS (4)
  - Nausea [Unknown]
  - Pain [Unknown]
  - Death [Fatal]
  - Fatigue [Unknown]
